FAERS Safety Report 25330855 (Version 4)
Quarter: 2025Q3

REPORT INFORMATION
  Report Type: Spontaneous
  Country: EU (occurrence: EU)
  Receive Date: 20250519
  Receipt Date: 20250708
  Transmission Date: 20251020
  Serious: Yes (Death, Life-Threatening, Hospitalization, Other)
  Sender: AMGEN
  Company Number: EU-AMGEN-SWESP2025096623

PATIENT
  Age: 63 Year
  Sex: Male

DRUGS (1)
  1. VECTIBIX [Suspect]
     Active Substance: PANITUMUMAB
     Indication: Colorectal cancer
     Route: 065
     Dates: start: 202411, end: 20241106

REACTIONS (17)
  - Death [Fatal]
  - Circulatory collapse [Fatal]
  - Pulmonary fibrosis [Fatal]
  - Cerebrovascular accident [Fatal]
  - Hemiplegia [Unknown]
  - Nasopharyngitis [Unknown]
  - Pain [Unknown]
  - Pyrexia [Unknown]
  - Colorectal cancer [Unknown]
  - Ileus paralytic [Recovered/Resolved]
  - Pneumonia aspiration [Recovered/Resolved]
  - Pneumonitis [Unknown]
  - Abdominal pain [Unknown]
  - Oxygen saturation decreased [Unknown]
  - Nausea [Unknown]
  - C-reactive protein increased [Unknown]
  - Vomiting [Unknown]

NARRATIVE: CASE EVENT DATE: 20250101
